FAERS Safety Report 6589215-4 (Version None)
Quarter: 2010Q1

REPORT INFORMATION
  Report Type: 
  Country: None (occurrence: None)
  Receive Date: 20100218
  Receipt Date: 20100210
  Transmission Date: 20100710
  Serious: Yes (Other)
  Sender: FDA-Public Use
  Company Number: US-AMGEN-QUU388451

PATIENT
  Sex: Female
  Weight: 89.1 kg

DRUGS (12)
  1. NPLATE [Suspect]
     Indication: IDIOPATHIC THROMBOCYTOPENIC PURPURA
     Route: 058
     Dates: start: 20090129
  2. CORTICOSTEROID NOS [Concomitant]
     Dates: start: 20070201
  3. IMMU-G [Concomitant]
     Dates: start: 20070201
  4. METFORMIN HCL [Concomitant]
  5. AMLODIPINE [Concomitant]
  6. NORGESTREL [Concomitant]
  7. MONTELUKAST [Concomitant]
  8. CETIRIZINE HCL [Concomitant]
  9. ZOLMITRIPTAN [Concomitant]
  10. PENICILLIN VK [Concomitant]
  11. FLUTICASONE/SALMETEROL [Concomitant]
  12. HYDROCHLOROTHIAZIDE [Concomitant]

REACTIONS (1)
  - HYPOTHYROIDISM [None]
